FAERS Safety Report 4584060-3 (Version None)
Quarter: 2005Q1

REPORT INFORMATION
  Report Type: 
  Country: None (occurrence: None)
  Receive Date: 20050125
  Receipt Date: 20041029
  Transmission Date: 20050727
  Serious: No
  Sender: FDA-Public Use
  Company Number: USA041082717

PATIENT
  Age: 70 Year
  Sex: Female
  Weight: 68 kg

DRUGS (1)
  1. FORTEO [Suspect]
     Dosage: 20 UG/1 DAY
     Dates: start: 20041014

REACTIONS (4)
  - FEELING HOT [None]
  - HYPERHIDROSIS [None]
  - MIDDLE INSOMNIA [None]
  - NIGHT SWEATS [None]
